FAERS Safety Report 7224306-6 (Version None)
Quarter: 2011Q1

REPORT INFORMATION
  Report Type: 
  Country: None (occurrence: None)
  Receive Date: 20110106
  Receipt Date: 20110106
  Transmission Date: 20110831
  Serious: Yes (Other)
  Sender: FDA-Public Use
  Company Number: None

PATIENT
  Sex: Female
  Weight: 68.0396 kg

DRUGS (1)
  1. SULFAMETHOXAZOLE AND TRIMETHOPRIM DOUBLE STRENGTH [Suspect]
     Indication: SINUSITIS
     Dosage: 1 TABLET EVERY 12 HOURS MOUTH
     Route: 048
     Dates: start: 20101206, end: 20101216

REACTIONS (7)
  - NECK PAIN [None]
  - ASTHENIA [None]
  - DYSPHONIA [None]
  - POLLAKIURIA [None]
  - TONGUE BLISTERING [None]
  - ABDOMINAL PAIN UPPER [None]
  - EYE IRRITATION [None]
